FAERS Safety Report 8144626-0 (Version None)
Quarter: 2012Q1

REPORT INFORMATION
  Report Type: 
  Country: None (occurrence: None)
  Receive Date: 20120217
  Receipt Date: 20120210
  Transmission Date: 20120608
  Serious: Yes (Hospitalization)
  Sender: FDA-Public Use
  Company Number: US-JNJFOC-20111210214

PATIENT
  Sex: Female
  Weight: 65.7 kg

DRUGS (6)
  1. INFLIXIMAB, RECOMBINANT [Suspect]
     Indication: INFLAMMATORY BOWEL DISEASE
     Route: 042
     Dates: start: 20110505
  2. MERCAPTOPURINE [Concomitant]
  3. PROZAC [Concomitant]
  4. VITAMIN [Concomitant]
  5. MESALAMINE [Concomitant]
     Route: 048
  6. PROBIOTICS [Concomitant]

REACTIONS (1)
  - INFLAMMATORY BOWEL DISEASE [None]
